FAERS Safety Report 10403897 (Version 1)
Quarter: 2014Q1

REPORT INFORMATION
  Report Type: Spontaneous
  Country: US (occurrence: None)
  Receive Date: 20130815
  Receipt Date: 20130815
  Transmission Date: 20141002
  Serious: Yes (Hospitalization)
  Sender: FDA-Public Use
  Company Number: ADR-2012-02103

PATIENT
  Age: 11 Year
  Sex: Male

DRUGS (1)
  1. LIORESAL INTRATHECAL (BACLOFEN INJECTION) 500 MCG/ML [Suspect]

REACTIONS (5)
  - Muscle spasticity [None]
  - Wound dehiscence [None]
  - Wound secretion [None]
  - Wound infection staphylococcal [None]
  - Implant site infection [None]
